FAERS Safety Report 9235999 (Version 1)
Quarter: 2013Q2

REPORT INFORMATION
  Report Type: Spontaneous
  Country: FR (occurrence: FR)
  Receive Date: 20130417
  Receipt Date: 20130417
  Transmission Date: 20140414
  Serious: Yes (Hospitalization)
  Sender: FDA-Public Use
  Company Number: FR-BRISTOL-MYERS SQUIBB COMPANY-18766006

PATIENT
  Age: 53 Year
  Sex: Female

DRUGS (1)
  1. ABILIFY [Suspect]
     Indication: BIPOLAR DISORDER
     Route: 048
     Dates: start: 200812, end: 20130131

REACTIONS (3)
  - Leukopenia [Recovered/Resolved]
  - Anaemia [Recovered/Resolved]
  - Weight decreased [Recovered/Resolved]
